FAERS Safety Report 4889939-0 (Version None)
Quarter: 2006Q1

REPORT INFORMATION
  Report Type: 
  Country: None (occurrence: None)
  Receive Date: 20060124
  Receipt Date: 20060117
  Transmission Date: 20060701
  Serious: Yes (Hospitalization, Other)
  Sender: FDA-Public Use
  Company Number: FR-SANOFI-SYNTHELABO-F01200600126

PATIENT
  Sex: Male

DRUGS (3)
  1. OXALIPLATIN [Suspect]
     Indication: COLORECTAL CANCER METASTATIC
     Dosage: 247 MG 1 X PER 3 WEEK
     Route: 042
  2. CAPECITABINE [Suspect]
     Dosage: 1500 MG 2 X PER DAY
     Route: 048
     Dates: start: 20050113, end: 20051229
  3. BEVACIZUMAB OR PLACEBO [Suspect]
     Dosage: X PER 3 WEEK

REACTIONS (2)
  - BACTERAEMIA [None]
  - VASCULAR PURPURA [None]
